FAERS Safety Report 4369087-9 (Version None)
Quarter: 2004Q2

REPORT INFORMATION
  Report Type: 
  Country: None (occurrence: None)
  Receive Date: 20040528
  Receipt Date: 20040519
  Transmission Date: 20050107
  Serious: Yes (Life-Threatening, Hospitalization)
  Sender: FDA-Public Use
  Company Number: 2004214952JP

PATIENT
  Age: 65 Year
  Sex: Male

DRUGS (12)
  1. ALDACTONE [Suspect]
     Indication: CARDIAC FAILURE
     Dosage: 25 MG, QD, ORAL
     Route: 048
  2. TICLOPIDINE HCL [Suspect]
     Dosage: 100 MG, BID, ORAL
     Route: 048
     Dates: end: 20040517
  3. RENIVACE (ENALAPRIL MALEATE) TABLET [Suspect]
     Dosage: 5 MG, BID, ORAL
     Route: 048
     Dates: end: 20040517
  4. ZYLORIC (ALLOPURINOL) TABLET [Suspect]
     Dosage: 100 MG, QD, ORAL
     Route: 048
     Dates: end: 20040517
  5. MEXITIL (MEXILETINE HYDROCHLORIDE) CAPSULE [Suspect]
     Dosage: 100 MG, TID, ORAL
     Route: 048
     Dates: end: 20040517
  6. ASPIRIN [Concomitant]
  7. LASIX [Concomitant]
  8. ARTIST [Concomitant]
  9. PARIET (RABEPRAZOLE SODIUM) [Concomitant]
  10. SELBEX (TEPRENONE) [Concomitant]
  11. BIOFERMIN (STREPTOCOCCUS FAECALIS, BACILLUS SUBTILIS) [Concomitant]
  12. WARFARIN SODIUM [Concomitant]

REACTIONS (2)
  - AGRANULOCYTOSIS [None]
  - INTERSTITIAL LUNG DISEASE [None]
